FAERS Safety Report 4502315-5 (Version None)
Quarter: 2004Q4

REPORT INFORMATION
  Report Type: 
  Country: None (occurrence: None)
  Receive Date: 20041116
  Receipt Date: 20040908
  Transmission Date: 20050328
  Serious: Yes (Hospitalization)
  Sender: FDA-Public Use
  Company Number: FR-GLAXOSMITHKLINE-B0344864A

PATIENT
  Age: 59 Year
  Sex: Female

DRUGS (5)
  1. CLAMOXYL [Suspect]
     Indication: HELICOBACTER GASTRITIS
     Route: 048
     Dates: start: 20040601
  2. NAXY [Suspect]
     Indication: HELICOBACTER GASTRITIS
     Route: 048
     Dates: start: 20040601
  3. OGAST [Suspect]
     Indication: HELICOBACTER GASTRITIS
     Route: 048
     Dates: start: 20040617, end: 20040629
  4. TEGRETOL [Suspect]
     Route: 048
  5. COAPROVEL [Suspect]
     Route: 048

REACTIONS (9)
  - ABDOMINAL PAIN [None]
  - ANOREXIA [None]
  - BLOOD LACTATE DEHYDROGENASE INCREASED [None]
  - DRUG INTERACTION [None]
  - FALL [None]
  - HYPOKALAEMIA [None]
  - HYPONATRAEMIA [None]
  - NAUSEA [None]
  - VOMITING [None]
